FAERS Safety Report 9716310 (Version 4)
Quarter: 2013Q4

REPORT INFORMATION
  Report Type: Spontaneous
  Country: JP (occurrence: JP)
  Receive Date: 20131127
  Receipt Date: 20131212
  Transmission Date: 20140711
  Serious: Yes (Other)
  Sender: FDA-Public Use
  Company Number: JP-AMGEN-JPNSP2013083048

PATIENT
  Age: 62 Year
  Sex: Female
  Weight: 44 kg

DRUGS (2)
  1. RANMARK [Suspect]
     Indication: METASTASES TO BONE
     Dosage: 120 MG, QD
     Route: 058
     Dates: start: 20131005, end: 20131025
  2. CALCICHEW D3 [Concomitant]
     Dosage: UNK
     Route: 065

REACTIONS (1)
  - Osteonecrosis of jaw [Not Recovered/Not Resolved]
